FAERS Safety Report 13190463 (Version 3)
Quarter: 2017Q2

REPORT INFORMATION
  Report Type: Report from Study
  Country: US (occurrence: US)
  Receive Date: 20170206
  Receipt Date: 20170419
  Transmission Date: 20170830
  Serious: No
  Sender: FDA-Public Use
  Company Number: US-009507513-1701USA013786

PATIENT
  Age: 73 Year
  Sex: Male
  Weight: 68.03 kg

DRUGS (5)
  1. PEMBROLIZUMAB. [Suspect]
     Active Substance: PEMBROLIZUMAB
     Dosage: 200 MG (FOURTH INFUSION), EVERY 3 WEEKS
     Route: 042
     Dates: start: 20170223, end: 20170223
  2. PEMBROLIZUMAB. [Suspect]
     Active Substance: PEMBROLIZUMAB
     Dosage: 200 MG (FIFTH INFUSION), EVERY 3 WEEKS
     Route: 042
     Dates: start: 20170317, end: 20170317
  3. PEMBROLIZUMAB. [Suspect]
     Active Substance: PEMBROLIZUMAB
     Dosage: 200 MG (SXTH INFUSION), EVERY 3 WEEKS
     Route: 042
     Dates: start: 20170405
  4. PEMBROLIZUMAB. [Suspect]
     Active Substance: PEMBROLIZUMAB
     Indication: NON-SMALL CELL LUNG CANCER
     Dosage: 100 MG, IN HIS FIRST AND SECOND INFUSION, EVERY 3 WEEKS
     Route: 042
     Dates: start: 20161214, end: 20170104
  5. PEMBROLIZUMAB. [Suspect]
     Active Substance: PEMBROLIZUMAB
     Dosage: 128 MG (THIRD INFUSION), EVERY 3 WEEKS
     Route: 042
     Dates: start: 20170126, end: 20170126

REACTIONS (17)
  - Pre-existing condition improved [Unknown]
  - Pain [Not Recovered/Not Resolved]
  - Fatigue [Unknown]
  - Procedural pain [Unknown]
  - Headache [Unknown]
  - Somnolence [Unknown]
  - Therapeutic response unexpected [Unknown]
  - Liver function test abnormal [Unknown]
  - Product use issue [Unknown]
  - Weight decreased [Recovered/Resolved]
  - Blood test abnormal [Unknown]
  - Pain [Recovered/Resolved]
  - Feeling abnormal [Unknown]
  - Pain [Recovered/Resolved]
  - Decreased appetite [Recovered/Resolved]
  - Arthralgia [Unknown]
  - Off label use [Unknown]

NARRATIVE: CASE EVENT DATE: 201612
